FAERS Safety Report 15241752 (Version 2)
Quarter: 2018Q3

REPORT INFORMATION
  Report Type: Report from Study
  Country: None (occurrence: CH)
  Receive Date: 20180805
  Receipt Date: 20180807
  Transmission Date: 20181010
  Serious: Yes (Death)
  Sender: FDA-Public Use
  Company Number: CH-ABBVIE-18S-151-2441636-00

PATIENT
  Sex: Male

DRUGS (3)
  1. DUODOPA [Suspect]
     Active Substance: CARBIDOPA\LEVODOPA
     Dosage: MD?9.5ML,CONTINUOUS RATE DAY 6.8ML/H,CONTINUOUS RATE NIGHT 4.3ML/H,EXTRA DOSE 2ML
     Route: 050
     Dates: start: 20170204, end: 20180403
  2. DUODOPA [Suspect]
     Active Substance: CARBIDOPA\LEVODOPA
     Indication: PRODUCT USED FOR UNKNOWN INDICATION
     Route: 050
     Dates: start: 20160509, end: 20170204
  3. DUODOPA [Suspect]
     Active Substance: CARBIDOPA\LEVODOPA
     Dosage: MD?7ML,CONTINUOUS RATE DAY 4.5ML/H,CONTINUOUS RATE NIGHT 3.5ML/H,EXTRA DOSE 2ML
     Route: 050
     Dates: start: 20180403

REACTIONS (4)
  - Fluid intake reduced [Fatal]
  - Acute kidney injury [Fatal]
  - Food refusal [Fatal]
  - Cachexia [Fatal]
